FAERS Safety Report 11735880 (Version 1)
Quarter: 2015Q4

REPORT INFORMATION
  Report Type: Spontaneous
  Country: US (occurrence: US)
  Receive Date: 20151110
  Receipt Date: 20151110
  Transmission Date: 20160304
  Serious: No
  Sender: FDA-Public Use
  Company Number: US-ELI_LILLY_AND_COMPANY-US201206002514

PATIENT
  Sex: Female

DRUGS (1)
  1. FORTEO [Suspect]
     Active Substance: TERIPARATIDE
     Indication: OSTEOPOROSIS
     Dosage: 20 UG, QD
     Dates: end: 20120524

REACTIONS (10)
  - Feeling abnormal [Recovering/Resolving]
  - Vomiting [Unknown]
  - Asthenia [Unknown]
  - Hypertension [Unknown]
  - Palpitations [Unknown]
  - Confusional state [Unknown]
  - Dizziness [Unknown]
  - Contusion [Unknown]
  - Tachycardia [Unknown]
  - Middle insomnia [Unknown]
